FAERS Safety Report 20567834 (Version 1)
Quarter: 2022Q1

REPORT INFORMATION
  Report Type: Spontaneous
  Country: GB (occurrence: GB)
  Receive Date: 20220308
  Receipt Date: 20220308
  Transmission Date: 20220423
  Serious: Yes (Other)
  Sender: FDA-Public Use
  Company Number: None

PATIENT
  Sex: Male

DRUGS (2)
  1. MEROPENEM [Interacting]
     Active Substance: MEROPENEM
     Dosage: UNK
  2. VALPROATE SODIUM [Interacting]
     Active Substance: VALPROATE SODIUM
     Dosage: UNK

REACTIONS (2)
  - Drug interaction [Recovering/Resolving]
  - Seizure [Recovering/Resolving]
